FAERS Safety Report 5717235-8 (Version None)
Quarter: 2008Q2

REPORT INFORMATION
  Report Type: 
  Country: None (occurrence: None)
  Receive Date: 20080423
  Receipt Date: 20080414
  Transmission Date: 20081010
  Serious: Yes (Death)
  Sender: FDA-Public Use
  Company Number: 2008SP003766

PATIENT
  Age: 69 Year
  Sex: Female
  Weight: 56.4 kg

DRUGS (3)
  1. TEMOZOLOMIDE [Suspect]
     Indication: GLIOBLASTOMA MULTIFORME
     Dosage: 230 MG; HS; PO
     Route: 048
     Dates: start: 20080204, end: 20080204
  2. THALIDOMIDE [Suspect]
     Indication: GLIOBLASTOMA MULTIFORME
     Dosage: 200 MG; PO
     Route: 048
     Dates: start: 20080204, end: 20080204
  3. COUMADIN [Concomitant]

REACTIONS (3)
  - DYSPNOEA [None]
  - RESPIRATORY ARREST [None]
  - SOMNOLENCE [None]
